FAERS Safety Report 11064779 (Version 1)
Quarter: 2015Q2

REPORT INFORMATION
  Report Type: Report from Study
  Country: US (occurrence: US)
  Receive Date: 20150424
  Receipt Date: 20150424
  Transmission Date: 20150821
  Serious: Yes (Hospitalization, Other)
  Sender: FDA-Public Use
  Company Number: US-BRISTOL-MYERS SQUIBB COMPANY-15490675

PATIENT
  Age: 78 Year
  Sex: Male

DRUGS (31)
  1. REFRESH TEARS [Concomitant]
     Active Substance: CARBOXYMETHYLCELLULOSE SODIUM
     Dosage: OPTH DROP,INSTILL 1 DROP IN AFFECTED EYE 4 DAY.
     Route: 047
  2. FLUOROMETHOLONE. [Concomitant]
     Active Substance: FLUOROMETHOLONE
     Dosage: OPTH DROPS,INSTILL 1 DROP IN EACH EYE FOR 10 DAYS.
     Route: 047
  3. HYDROCORTISONE. [Concomitant]
     Active Substance: HYDROCORTISONE
  4. METAGLIP [Concomitant]
     Active Substance: GLIPIZIDE\METFORMIN HYDROCHLORIDE
     Dosage: 1 DF=5-500MG TAB,1 TAB IN MORNING 1 TAB IN EVENING.
     Route: 048
  5. FLEXERIL [Concomitant]
     Active Substance: CYCLOBENZAPRINE HYDROCHLORIDE
     Dosage: 1 DF= 1TAB OF 10MG AT BED TIME
     Route: 048
  6. LUPRON [Concomitant]
     Active Substance: LEUPROLIDE ACETATE
     Dosage: UNK
     Dates: start: 1998
  7. SODIUM CHLORIDE. [Concomitant]
     Active Substance: SODIUM CHLORIDE
     Dosage: .9 %, UNK
     Route: 042
  8. HYDROCORTISONE ACETATE. [Concomitant]
     Active Substance: HYDROCORTISONE ACETATE
     Dosage: 1 DF= 1 SUPPOSTORY,25MG RECT SUPP,ALSO TAKEN 1%.
     Route: 054
  9. MOTRIN [Concomitant]
     Active Substance: IBUPROFEN
     Indication: PAIN
     Dosage: 1 DF= 1 TAB OF 800MG TAB,EVERY 8 HRS.
     Route: 048
  10. IPILIMUMAB [Suspect]
     Active Substance: IPILIMUMAB
     Indication: PROSTATE CANCER
     Dosage: NO OF COURSE=2.
     Route: 042
     Dates: start: 20110113
  11. MULTI VITAMIN [Concomitant]
     Active Substance: VITAMINS
     Dosage: 1 DF= 1 TAB OF MULTIVITAMIN
     Route: 048
  12. LOPRESSOR [Concomitant]
     Active Substance: METOPROLOL TARTRATE
     Dosage: METOPROLOL TARTARTATE 25 MG
     Route: 048
  13. NORCO [Concomitant]
     Active Substance: ACETAMINOPHEN\HYDROCODONE BITARTRATE
     Dosage: 1 DF=5-325 MG 1 TAB Q4H
     Route: 048
  14. ERYTHROMYCIN. [Concomitant]
     Active Substance: ERYTHROMYCIN
     Dosage: 1 DF=5MG/G OPTH OINT 0.5%,INSTILL 0.5 INCH RIBBON IN EACH EYE AT BED TIME
     Route: 047
  15. PRAVASTATINE TABS [Concomitant]
     Indication: BLOOD CHOLESTEROL
     Dosage: 1 DF= 1 AND HALF TAB,4O MG TAB
     Route: 048
  16. ELAVIL [Concomitant]
     Active Substance: AMITRIPTYLINE HYDROCHLORIDE
     Dosage: 1 DF= 1 TAB OF 10MG AT BED TIME
     Route: 048
  17. ECOTRIN [Concomitant]
     Active Substance: ASPIRIN
     Dosage: 1 DF= 1 TAB OF 325MG ASPIRIN
     Route: 048
  18. CALCIUM + VITAMIN D [Concomitant]
     Active Substance: CALCIUM\VITAMIN D
     Dosage: 1 DF=500-100MG,CHEW TAB,1 TAB UPTO TID WITH MEALS.
     Route: 048
  19. DELTASONE [Concomitant]
     Active Substance: PREDNISONE
     Dosage: 20 MG, BID
     Route: 048
     Dates: start: 20110121
  20. LEVOTHROID [Concomitant]
     Active Substance: LEVOTHYROXINE SODIUM
     Dosage: 1 DF= 100MCG TAB
     Route: 048
  21. VITAMIN K [Concomitant]
     Active Substance: PHYTONADIONE
     Dosage: 1 DF=40 MG TAB,CHEW UPTO TID WITH MEALS
     Route: 048
  22. LEUPROLIDE [Concomitant]
     Active Substance: LEUPROLIDE
     Dosage: 3 MONTHS
     Route: 030
  23. VICODIN [Concomitant]
     Active Substance: ACETAMINOPHEN\HYDROCODONE BITARTRATE
     Dosage: UNK
     Dates: start: 20110202
  24. ATARAX [Concomitant]
     Active Substance: HYDROXYZINE\HYDROXYZINE HYDROCHLORIDE
     Dosage: 1 DF= 1 TAB 25 MG PRN
     Route: 048
  25. PRAVACHOL [Concomitant]
     Active Substance: PRAVASTATIN SODIUM
     Dosage: PRAVASTATIN 40 MG
     Route: 048
  26. AREDIA [Concomitant]
     Active Substance: PAMIDRONATE DISODIUM
     Dosage: UNK
     Dates: start: 20110113, end: 20110113
  27. LEVOTHROID [Concomitant]
     Active Substance: LEVOTHYROXINE SODIUM
     Dosage: UNK
     Dates: start: 2000
  28. TRIMETHOBENZAMIDE [Concomitant]
     Active Substance: TRIMETHOBENZAMIDE
     Indication: NAUSEA
     Dosage: 1 DF=1 CAP OF 300MG.EVERY 8HR
     Route: 048
  29. DITROPAN XL [Concomitant]
     Active Substance: OXYBUTYNIN CHLORIDE
     Dosage: 1 DF=40MG
     Route: 048
  30. ZOFRAN [Concomitant]
     Active Substance: ONDANSETRON HYDROCHLORIDE
     Dosage: Q6H,4 MG INJECTION.
     Route: 042
  31. TYLENOL [Concomitant]
     Active Substance: ACETAMINOPHEN
     Dosage: 1 DF= 650 MG TAB. Q4H
     Route: 048

REACTIONS (4)
  - Atrial fibrillation [Recovered/Resolved]
  - Dyspnoea [Recovered/Resolved]
  - Fatigue [Recovered/Resolved]
  - Pyrexia [Recovered/Resolved]

NARRATIVE: CASE EVENT DATE: 20110114
